FAERS Safety Report 23680995 (Version 1)
Quarter: 2024Q1

REPORT INFORMATION
  Report Type: Report from Study
  Country: US (occurrence: US)
  Receive Date: 20240328
  Receipt Date: 20240328
  Transmission Date: 20240410
  Serious: Yes (Other)
  Sender: FDA-Public Use
  Company Number: US-ABBVIE-5641075

PATIENT
  Sex: Male

DRUGS (2)
  1. VENCLEXTA [Suspect]
     Active Substance: VENETOCLAX
     Indication: Acute myeloid leukaemia
     Dosage: TAKING 2 TABLETS DAILY
     Route: 048
     Dates: start: 202311, end: 202401
  2. VENCLEXTA [Suspect]
     Active Substance: VENETOCLAX
     Indication: Acute myeloid leukaemia
     Dosage: VENCLEXTA 100 MG TABLET BY MOUTH TWICE WEEKLY ON MONDAY AND THURSDAY
     Route: 048
     Dates: start: 20231104

REACTIONS (3)
  - Myelosuppression [Unknown]
  - Product administration error [Unknown]
  - Asthenia [Unknown]
